FAERS Safety Report 9714212 (Version 1)
Quarter: 2013Q4

REPORT INFORMATION
  Report Type: Spontaneous
  Country: US (occurrence: US)
  Receive Date: 20131126
  Receipt Date: 20131126
  Transmission Date: 20140711
  Serious: Yes (Hospitalization)
  Sender: FDA-Public Use
  Company Number: US-GILEAD-2008-0019402

PATIENT
  Sex: Male

DRUGS (10)
  1. LETAIRIS [Suspect]
     Indication: PULMONARY ARTERIAL HYPERTENSION
     Route: 048
     Dates: start: 20080608, end: 20081208
  2. FUROSEMIDE [Concomitant]
  3. SPIRONOLACTONE [Concomitant]
  4. ZAROXOLYN [Concomitant]
  5. AMIODARONE [Concomitant]
  6. CARDIZEM [Concomitant]
  7. ADVAIR DISKUS [Concomitant]
  8. PROVIGIL [Concomitant]
  9. PROTONIX [Concomitant]
  10. POTASSIUM [Concomitant]

REACTIONS (1)
  - Oedema peripheral [None]
